FAERS Safety Report 8116933-9 (Version None)
Quarter: 2012Q1

REPORT INFORMATION
  Report Type: 
  Country: None (occurrence: None)
  Receive Date: 20120206
  Receipt Date: 20120129
  Transmission Date: 20120608
  Serious: No
  Sender: FDA-Public Use
  Company Number: US-BAYER-2012-010583

PATIENT
  Age: 49 Year
  Sex: Female
  Weight: 86 kg

DRUGS (6)
  1. LORAZEPAM [Concomitant]
  2. ZOLOFT [Concomitant]
  3. INSULIN [Concomitant]
  4. OMEPRAZOLE [Concomitant]
  5. ALEVE (CAPLET) [Suspect]
     Indication: HEADACHE
     Dosage: 1 DF, BID
     Route: 048
     Dates: start: 20110101
  6. NEURONTIN [Concomitant]

REACTIONS (3)
  - DIARRHOEA [None]
  - NO ADVERSE EVENT [None]
  - HEADACHE [None]
